FAERS Safety Report 6964031-X (Version None)
Quarter: 2010Q3

REPORT INFORMATION
  Report Type: 
  Country: None (occurrence: None)
  Receive Date: 20100902
  Receipt Date: 20100902
  Transmission Date: 20110219
  Serious: Yes (Hospitalization)
  Sender: FDA-Public Use
  Company Number: None

PATIENT
  Age: 47 Year
  Sex: Male

DRUGS (2)
  1. GABAPENTIN [Suspect]
     Indication: BACK PAIN
     Dosage: 400 MG TID PO
     Route: 048
     Dates: start: 20100420, end: 20100618
  2. CYCLOBENZAPRINE [Suspect]
     Indication: BACK PAIN
     Dosage: 10 MG TID PO
     Route: 048
     Dates: start: 20100420

REACTIONS (4)
  - LETHARGY [None]
  - OVERDOSE [None]
  - SOMNOLENCE [None]
  - SYNCOPE [None]
